FAERS Safety Report 21739585 (Version 1)
Quarter: 2022Q4

REPORT INFORMATION
  Report Type: Report from Study
  Country: US (occurrence: US)
  Receive Date: 20221216
  Receipt Date: 20221216
  Transmission Date: 20230113
  Serious: Yes (Other)
  Sender: FDA-Public Use
  Company Number: US-MYLANLABS-2022M1139643

PATIENT
  Age: 70 Year
  Sex: Male

DRUGS (6)
  1. OXALIPLATIN [Suspect]
     Active Substance: OXALIPLATIN
     Indication: Colon cancer
     Dosage: UNK, CYCLE (8 CYCLES, THERAPY INITIALLY CONTINUED AND THEN DISCONTINUED)
     Route: 042
  2. CETIRIZINE [Suspect]
     Active Substance: CETIRIZINE HYDROCHLORIDE
     Indication: Prophylaxis
     Dosage: UNK (IN THE EVENING BEFORE AND MORNING OF THE OXALIPLATIN TREATMENT)
     Route: 065
  3. DEXAMETHASONE [Suspect]
     Active Substance: DEXAMETHASONE
     Indication: Prophylaxis
     Dosage: 8 MILLIGRAM; IN THE EVENING BEFORE AND MORNING OF THE OXALIPLATIN TREATMENT
     Route: 065
  4. DEXAMETHASONE [Suspect]
     Active Substance: DEXAMETHASONE
     Indication: Premedication
     Dosage: 20 MILLIGRAM; IN THE EVENING BEFORE AND MORNING OF THE OXALIPLATIN TREATMENT
     Route: 065
  5. LEUCOVORIN CALCIUM [Suspect]
     Active Substance: LEUCOVORIN CALCIUM
     Indication: Colon cancer
     Dosage: UNK, CYCLE, INFUSION (8 CYCLES; THERAPY INITIALLY CONTINUED AND THEN DISCONTINUED)
     Route: 042
  6. FLUOROURACIL [Suspect]
     Active Substance: FLUOROURACIL
     Indication: Colon cancer
     Dosage: UNK, CYCLE, INFUSION (8 CYCLES; THERAPY INITIALLY CONTINUED AND THEN DISCONTINUED)
     Route: 042

REACTIONS (3)
  - Infusion related hypersensitivity reaction [Unknown]
  - Drug ineffective [Unknown]
  - Disease progression [Unknown]
